FAERS Safety Report 16263524 (Version 2)
Quarter: 2019Q2

REPORT INFORMATION
  Report Type: Report from Study
  Country: DE (occurrence: DE)
  Receive Date: 20190502
  Receipt Date: 20190624
  Transmission Date: 20190711
  Serious: Yes (Other)
  Sender: FDA-Public Use
  Company Number: DE-EMD SERONO-9088922

PATIENT
  Age: 38 Year
  Sex: Female

DRUGS (1)
  1. REBIF [Suspect]
     Active Substance: INTERFERON BETA-1A
     Indication: MULTIPLE SCLEROSIS
     Route: 058
     Dates: start: 2012

REACTIONS (6)
  - Scar [Unknown]
  - Injection site inflammation [Not Recovered/Not Resolved]
  - Feeling abnormal [Unknown]
  - Injection site scar [Unknown]
  - Injection site atrophy [Unknown]
  - Surgery [Unknown]

NARRATIVE: CASE EVENT DATE: 2016
